FAERS Safety Report 4367229-2 (Version None)
Quarter: 2004Q2

REPORT INFORMATION
  Report Type: 
  Country: None (occurrence: None)
  Receive Date: 20040526
  Receipt Date: 20040507
  Transmission Date: 20050107
  Serious: Yes (Hospitalization, Other)
  Sender: FDA-Public Use
  Company Number: ZONI001416

PATIENT
  Age: 18 Year
  Sex: Female

DRUGS (2)
  1. ZONEGRAN [Suspect]
     Indication: CONVULSION
     Dosage: 400 MG, DAILY ORAL
     Route: 048
     Dates: start: 20031201, end: 20040101
  2. TRILEPTAL [Concomitant]

REACTIONS (12)
  - AGGRESSION [None]
  - DEPRESSION [None]
  - FEELING ABNORMAL [None]
  - HAEMORRHAGE [None]
  - HEAD INJURY [None]
  - HOMICIDAL IDEATION [None]
  - MEDICATION ERROR [None]
  - MENTAL DISORDER [None]
  - PSYCHOTIC DISORDER [None]
  - REFUSAL OF TREATMENT BY PATIENT [None]
  - SEXUAL ASSAULT VICTIM [None]
  - SUICIDAL IDEATION [None]
